APPROVED DRUG PRODUCT: TRIFLUOPERAZINE HYDROCHLORIDE
Active Ingredient: TRIFLUOPERAZINE HYDROCHLORIDE
Strength: EQ 1MG BASE
Dosage Form/Route: TABLET;ORAL
Application: A040153 | Product #001
Applicant: ATHEM HOLDINGS LLC
Approved: Oct 25, 1996 | RLD: No | RS: No | Type: DISCN